FAERS Safety Report 5365338-2 (Version None)
Quarter: 2007Q2

REPORT INFORMATION
  Report Type: 
  Country: None (occurrence: None)
  Receive Date: 20070621
  Receipt Date: 20070611
  Transmission Date: 20071010
  Serious: Yes (Other)
  Sender: FDA-Public Use
  Company Number: BE-ROCHE-493924

PATIENT
  Age: 82 Year
  Sex: Female
  Weight: 50 kg

DRUGS (7)
  1. BONIVA [Suspect]
     Indication: OSTEOPOROSIS POSTMENOPAUSAL
     Route: 048
     Dates: start: 20070315, end: 20070415
  2. SIPRALEXA [Concomitant]
     Route: 048
  3. ZURCAL [Concomitant]
     Dosage: DRUG NAME: ZURCALE.
     Route: 048
  4. IRBESARTAN [Concomitant]
     Route: 048
  5. TRAZODONE HCL [Concomitant]
     Dosage: DRUG NAME: DOC TRAZODONE, GENERIC NAME:TRAZODONHYDROCHLORIDE
  6. CRATAEGUS EXTRACT [Concomitant]
     Dosage: NAME: SENEUVAL. GENERIC: CRATAEGUS EXTRACT (DRY) 25 MG + PASSIFLORA-EXTRACT (DRY) 25 MG+VALERIAANEX+
  7. LORAZEPAM [Concomitant]
     Dosage: DOSAGE: IF NECESSARY.

REACTIONS (4)
  - ARTHRALGIA [None]
  - ARTHRITIS [None]
  - INFLUENZA LIKE ILLNESS [None]
  - OEDEMA PERIPHERAL [None]
